FAERS Safety Report 13346490 (Version 2)
Quarter: 2017Q2

REPORT INFORMATION
  Report Type: Spontaneous
  Country: US (occurrence: US)
  Receive Date: 20170317
  Receipt Date: 20170427
  Transmission Date: 20170830
  Serious: Yes (Other)
  Sender: FDA-Public Use
  Company Number: US-NEOS THERAPEUTICS, LP-2017NEO00015

PATIENT
  Age: 41 Year
  Sex: Female
  Weight: 67.12 kg

DRUGS (2)
  1. ADZENYS XR-ODT [Suspect]
     Active Substance: AMPHETAMINE
     Indication: ATTENTION DEFICIT/HYPERACTIVITY DISORDER
     Dosage: 15.7 MG, 1X/DAY
     Route: 048
     Dates: start: 201605
  2. ADZENYS XR-ODT [Suspect]
     Active Substance: AMPHETAMINE
     Dosage: UNK
     Route: 048
     Dates: start: 201605, end: 2017

REACTIONS (6)
  - Ventricular extrasystoles [Recovered/Resolved]
  - Constipation [Unknown]
  - Blood potassium decreased [Unknown]
  - Road traffic accident [Unknown]
  - Insomnia [Unknown]
  - Anxiety [Unknown]

NARRATIVE: CASE EVENT DATE: 201608
